FAERS Safety Report 8664360 (Version 2)
Quarter: 2022Q3

REPORT INFORMATION
  Report Type: Spontaneous
  Country: FR (occurrence: FR)
  Receive Date: 20120713
  Receipt Date: 20220830
  Transmission Date: 20221026
  Serious: Yes (Other)
  Sender: FDA-Public Use
  Company Number: FR-BRISTOL-MYERS SQUIBB COMPANY-16731739

PATIENT
  Age: 62 Year
  Sex: Female

DRUGS (5)
  1. IPILIMUMAB [Suspect]
     Active Substance: IPILIMUMAB
     Indication: Metastatic malignant melanoma
     Dosage: DOSE : UNAVAILABLE;     FREQ : UNAVAILABLE
     Route: 065
  2. IPILIMUMAB [Suspect]
     Active Substance: IPILIMUMAB
     Indication: Malignant melanoma
     Route: 065
  3. BRIPLATIN [Suspect]
     Active Substance: CISPLATIN
     Indication: Metastatic malignant melanoma
     Route: 065
  4. CARMUSTINE [Suspect]
     Active Substance: CARMUSTINE
     Indication: Metastatic malignant melanoma
     Route: 065
  5. DACARBAZINE [Suspect]
     Active Substance: DACARBAZINE
     Indication: Metastatic malignant melanoma
     Route: 065

REACTIONS (1)
  - Sarcoidosis [Recovering/Resolving]
